FAERS Safety Report 7210304-5 (Version None)
Quarter: 2011Q1

REPORT INFORMATION
  Report Type: 
  Country: None (occurrence: None)
  Receive Date: 20110103
  Receipt Date: 20110103
  Transmission Date: 20110831
  Serious: Yes (Hospitalization)
  Sender: FDA-Public Use
  Company Number: None

PATIENT
  Age: 64 Year
  Sex: Male
  Weight: 103 kg

DRUGS (1)
  1. INDOMETHACIN [Suspect]
     Dates: start: 20101115

REACTIONS (1)
  - GASTROINTESTINAL HAEMORRHAGE [None]
